FAERS Safety Report 6048626-6 (Version None)
Quarter: 2009Q1

REPORT INFORMATION
  Report Type: 
  Country: None (occurrence: None)
  Receive Date: 20090123
  Receipt Date: 20090119
  Transmission Date: 20090719
  Serious: Yes (Death, Life-Threatening, Hospitalization)
  Sender: FDA-Public Use
  Company Number: FR-BRISTOL-MYERS SQUIBB COMPANY-14476071

PATIENT
  Age: 72 Year
  Sex: Male

DRUGS (3)
  1. TAXOL [Suspect]
     Indication: BRONCHIAL CARCINOMA
     Dates: start: 20081125, end: 20081125
  2. CARBOPLATIN [Concomitant]
     Indication: BRONCHIAL CARCINOMA
  3. POLARAMINE [Concomitant]
     Indication: PREMEDICATION

REACTIONS (5)
  - ANAPHYLACTIC SHOCK [None]
  - CARDIOGENIC SHOCK [None]
  - LOSS OF CONSCIOUSNESS [None]
  - MULTI-ORGAN FAILURE [None]
  - RESPIRATORY ARREST [None]
